FAERS Safety Report 15373815 (Version 1)
Quarter: 2018Q3

REPORT INFORMATION
  Report Type: Spontaneous
  Country: CA (occurrence: CA)
  Receive Date: 20180912
  Receipt Date: 20180912
  Transmission Date: 20181010
  Serious: Yes (Other)
  Sender: FDA-Public Use
  Company Number: CA-ROCHE-2182367

PATIENT
  Age: 55 Year
  Sex: Female

DRUGS (5)
  1. METHYLPREDNISOLONE. [Concomitant]
     Active Substance: METHYLPREDNISOLONE
     Indication: SKIN DISORDER
     Route: 042
  2. RITUXIMAB. [Suspect]
     Active Substance: RITUXIMAB
     Indication: INTERSTITIAL LUNG DISEASE
     Route: 042
  3. METHYLPREDNISOLONE. [Concomitant]
     Active Substance: METHYLPREDNISOLONE
     Indication: LUNG DISORDER
  4. PREDNISONE. [Suspect]
     Active Substance: PREDNISONE
     Indication: INTERSTITIAL LUNG DISEASE
     Route: 048
  5. PREDNISONE. [Suspect]
     Active Substance: PREDNISONE
     Route: 065

REACTIONS (4)
  - Product use in unapproved indication [Unknown]
  - Drug ineffective [Unknown]
  - Drug-induced liver injury [Unknown]
  - Off label use [Unknown]
